FAERS Safety Report 4502936-X (Version None)
Quarter: 2004Q4

REPORT INFORMATION
  Report Type: 
  Country: None (occurrence: None)
  Receive Date: 20041112
  Receipt Date: 20041101
  Transmission Date: 20050328
  Serious: No
  Sender: FDA-Public Use
  Company Number: 04H-163-0279713-00

PATIENT
  Age: 30 Year
  Sex: Female

DRUGS (2)
  1. HEPARIN SODIUM [Suspect]
     Indication: ANTICOAGULANT THERAPY
     Dosage: INTRAVENOUS, DAY 1 - DAY 3
  2. WARFARIN SODIUM [Suspect]
     Indication: ANTICOAGULANT THERAPY
     Dosage: 4 MG, DAILY

REACTIONS (8)
  - ADVERSE DRUG REACTION [None]
  - BLOOD BLISTER [None]
  - BODY TEMPERATURE INCREASED [None]
  - HEPARIN-INDUCED THROMBOCYTOPENIA [None]
  - PROTEIN S DEFICIENCY [None]
  - PYREXIA [None]
  - SKIN DISCOLOURATION [None]
  - SKIN NECROSIS [None]
